FAERS Safety Report 22604473 (Version 1)
Quarter: 2023Q2

REPORT INFORMATION
  Report Type: Other
  Country: GR (occurrence: GR)
  Receive Date: 20230615
  Receipt Date: 20230615
  Transmission Date: 20230721
  Serious: Yes (Hospitalization)
  Sender: FDA-Public Use
  Company Number: GR-CELLTRION HEALTHCARE HUNGARY KFT-2023GR011424

PATIENT
  Age: 62 Year
  Sex: Female

DRUGS (1)
  1. RITUXIMAB [Suspect]
     Active Substance: RITUXIMAB
     Indication: Endocrine ophthalmopathy
     Dosage: 1 GR, EVERY 1 WEEK
     Route: 065

REACTIONS (2)
  - Off label use [Unknown]
  - Endocrine ophthalmopathy [Unknown]
